FAERS Safety Report 25923693 (Version 1)
Quarter: 2025Q4

REPORT INFORMATION
  Report Type: Other
  Country: EU (occurrence: EU)
  Receive Date: 20251015
  Receipt Date: 20251015
  Transmission Date: 20260117
  Serious: Yes (Other)
  Sender: ZYDUS PHARM
  Company Number: None

PATIENT

DRUGS (6)
  1. LAMOTRIGINE [Suspect]
     Active Substance: LAMOTRIGINE
     Indication: Medication error
     Dosage: 25 MILLIGRAM, 1 TOTAL
     Route: 048
     Dates: start: 20250825, end: 20250825
  2. RAMIPRIL [Suspect]
     Active Substance: RAMIPRIL
     Indication: Medication error
     Dosage: 2.5 MILLIGRAM, 1 TOTAL
     Route: 048
     Dates: start: 20250825, end: 20250825
  3. METFORMIN [Suspect]
     Active Substance: METFORMIN HYDROCHLORIDE
     Indication: Medication error
     Dosage: 500 MILLIGRAM, 1 TOTAL
     Route: 048
     Dates: start: 20250825, end: 20250825
  4. PREGABALIN [Suspect]
     Active Substance: PREGABALIN
     Indication: Medication error
     Dosage: 25 MILLIGRAM, 1 TOTAL
     Route: 048
     Dates: start: 20250825, end: 20250825
  5. CYAMEMAZINE [Suspect]
     Active Substance: CYAMEMAZINE
     Indication: Medication error
     Dosage: 12.5 MILLIGRAM, 1 TOTAL
     Route: 048
     Dates: start: 20250825, end: 20250825
  6. OXAZEPAM [Suspect]
     Active Substance: OXAZEPAM
     Indication: Medication error
     Dosage: 10 MILLIGRAM, 1 TOTAL
     Route: 048
     Dates: start: 20250825, end: 20250825

REACTIONS (3)
  - Hypotension [Recovered/Resolved]
  - Tremor [Recovered/Resolved]
  - Somnolence [Recovered/Resolved]

NARRATIVE: CASE EVENT DATE: 20250825
